FAERS Safety Report 7304074-X (Version None)
Quarter: 2011Q1

REPORT INFORMATION
  Report Type: 
  Country: None (occurrence: None)
  Receive Date: 20110221
  Receipt Date: 20110209
  Transmission Date: 20110831
  Serious: Yes (Hospitalization, Other)
  Sender: FDA-Public Use
  Company Number: PHEH2008US00461

PATIENT
  Sex: Male
  Weight: 136.6 kg

DRUGS (45)
  1. ISONIAZID [Concomitant]
     Dosage: UNK
  2. AMOXICILLIN [Concomitant]
     Dosage: 500 MG
  3. ACYCLOVIR [Concomitant]
     Dosage: UNK
  4. OMEPRAZOLE [Concomitant]
     Dosage: UNK
  5. LUNESTA [Concomitant]
  6. MAGNESIUM [Concomitant]
  7. ASA [Concomitant]
  8. AREDIA [Suspect]
     Dosage: 90 MG, QMO
     Route: 042
     Dates: start: 20000216, end: 20040101
  9. AREDIA [Suspect]
     Dosage: UNK
     Dates: start: 20050101
  10. ZOMETA [Suspect]
     Dosage: 4 MG, UNK
     Route: 042
     Dates: start: 20040101
  11. DAPSONE [Concomitant]
     Dosage: 100 MG
  12. MYSOLINE [Concomitant]
     Dosage: UNK
  13. EPOGEN [Concomitant]
     Dosage: UNK
  14. FLUCONAZOLE [Concomitant]
     Dosage: UNK
  15. VITAMIN B6 [Concomitant]
  16. PROVENTIL [Concomitant]
  17. ZOMETA [Suspect]
     Dosage: 4 MG, UNK
     Dates: start: 20030110, end: 20030506
  18. FLUZONE [Concomitant]
     Dosage: UNK
  19. SINEMET [Concomitant]
     Dosage: UNK
  20. DALMANE [Concomitant]
     Dosage: 40 MG BY MOUTH AT BEDTIME
  21. FAMVIR                                  /NET/ [Concomitant]
     Dosage: UNK
  22. CIPRO [Concomitant]
     Dosage: 500 MG
  23. ALBUTEROL [Concomitant]
     Dosage: UNK
  24. SEREVENT [Concomitant]
     Dosage: UNK
  25. RANITIN [Concomitant]
     Dosage: UNK
  26. CALTRATE [Concomitant]
     Dosage: UNK
  27. PRILOSEC [Concomitant]
  28. ZANTAC [Concomitant]
     Dosage: 150 MG BY MOUTH
  29. SELENIUM [Concomitant]
  30. AREDIA [Suspect]
     Dosage: UNK
     Dates: end: 20051111
  31. PREDNISONE [Concomitant]
  32. FLURAZEPAM [Concomitant]
     Dosage: 30 MG
  33. CLOTRIMAZOLE ^POLFA^ [Concomitant]
     Dosage: UNK
  34. PENICILLIN VK [Concomitant]
     Dosage: UNK
  35. TOBRADEX [Concomitant]
     Dosage: UNK
  36. BACITRACIN OPHTHALMIC OINTMENT [Concomitant]
     Dosage: UNK
  37. ESZOPICLONE [Concomitant]
     Dosage: 2 MG
  38. LOPROX [Concomitant]
     Dosage: UNK
  39. CARBIDOPA + LEVODOPA [Concomitant]
     Dosage: UNK
  40. BACTRIM [Concomitant]
     Dosage: UNK
  41. VITAMIN D [Concomitant]
  42. SULFAMETHIZOLE TAB [Concomitant]
  43. MULTI-VITAMINS [Concomitant]
  44. ISONIAZID [Concomitant]
  45. MORPHINE [Concomitant]

REACTIONS (45)
  - FATIGUE [None]
  - POOR PERSONAL HYGIENE [None]
  - TOOTH ABSCESS [None]
  - SPINAL DEFORMITY [None]
  - INFECTION [None]
  - DIVERTICULITIS [None]
  - X-RAY ABNORMAL [None]
  - ASTIGMATISM [None]
  - BONE DENSITY DECREASED [None]
  - AZOTAEMIA [None]
  - DENTURE WEARER [None]
  - GINGIVAL RECESSION [None]
  - NEUROPATHY PERIPHERAL [None]
  - HYPOGAMMAGLOBULINAEMIA [None]
  - IMPAIRED HEALING [None]
  - RETINOPATHY [None]
  - ANXIETY [None]
  - INJURY [None]
  - CYST [None]
  - OSTEOPENIA [None]
  - RIB FRACTURE [None]
  - VISUAL ACUITY REDUCED [None]
  - PAIN [None]
  - FISTULA [None]
  - POLYP COLORECTAL [None]
  - TONGUE DISORDER [None]
  - RETINAL TEAR [None]
  - HEPATOMEGALY [None]
  - OSTEONECROSIS OF JAW [None]
  - ANHEDONIA [None]
  - SWELLING [None]
  - OSTEITIS [None]
  - BONE LESION [None]
  - EDENTULOUS [None]
  - MASTICATION DISORDER [None]
  - DENTAL PROSTHESIS USER [None]
  - CELLULITIS [None]
  - AORTIC DISORDER [None]
  - PROSTATIC SPECIFIC ANTIGEN INCREASED [None]
  - GOITRE [None]
  - BONE DISORDER [None]
  - GINGIVITIS [None]
  - ANAEMIA [None]
  - SKIN LESION [None]
  - WOUND DEHISCENCE [None]
